FAERS Safety Report 5831511-X (Version None)
Quarter: 2008Q3

REPORT INFORMATION
  Report Type: 
  Country: None (occurrence: None)
  Receive Date: 20080801
  Receipt Date: 20080722
  Transmission Date: 20090109
  Serious: Yes (Hospitalization)
  Sender: FDA-Public Use
  Company Number: FR-PFIZER INC-2008061605

PATIENT
  Sex: Female

DRUGS (3)
  1. SOLU-MEDROL [Suspect]
     Indication: ASTHMA
     Route: 042
  2. ATROVENT [Suspect]
     Indication: ASTHMA
     Route: 045
  3. BRICANYL [Suspect]
     Indication: ASTHMA
     Route: 045

REACTIONS (1)
  - SKIN PLAQUE [None]
